FAERS Safety Report 17140705 (Version 2)
Quarter: 2019Q4

REPORT INFORMATION
  Report Type: Report from Study
  Country: HU (occurrence: HU)
  Receive Date: 20191211
  Receipt Date: 20191225
  Transmission Date: 20200122
  Serious: Yes (Death, Hospitalization)
  Sender: FDA-Public Use
  Company Number: HU-ACTELION PHARMACEUTICALS LTD.-A-CH2019-199040

PATIENT
  Age: 61 Year
  Sex: Male

DRUGS (13)
  1. UPTRAVI [Suspect]
     Active Substance: SELEXIPAG
     Indication: PULMONARY ARTERIAL HYPERTENSION
     Dosage: 200 MCG, BID
     Route: 048
     Dates: start: 201905, end: 20191202
  2. METFORMIN [Concomitant]
     Active Substance: METFORMIN HYDROCHLORIDE
     Dosage: 100 MG, BID
  3. ACEMETACIN [Concomitant]
     Active Substance: ACEMETACIN
     Dosage: 60 MG, QD
     Dates: end: 20191202
  4. ELIQUIS [Concomitant]
     Active Substance: APIXABAN
     Dosage: 5 MG, BID
     Dates: end: 20191202
  5. VEROSPIRON [Concomitant]
     Active Substance: SPIRONOLACTONE
     Dosage: 25 MG, QD
     Dates: end: 20191202
  6. BRINALDIX [Concomitant]
     Dosage: 10 MG, QD
     Dates: end: 20191202
  7. REVATIO [Concomitant]
     Active Substance: SILDENAFIL CITRATE
     Dosage: UNK
     Dates: start: 201811, end: 20191202
  8. FUROSEMID [Concomitant]
     Active Substance: FUROSEMIDE
     Dosage: 0.5 UNK, BID
     Dates: end: 20191202
  9. BECLOMETHASONE [Concomitant]
     Active Substance: BECLOMETHASONE
     Dosage: 2 DF, BID
     Dates: end: 20191202
  10. OPSUMIT [Suspect]
     Active Substance: MACITENTAN
     Indication: PULMONARY ARTERIAL HYPERTENSION
     Dosage: 10 MG, QD
     Route: 048
     Dates: start: 20181117, end: 20191202
  11. MILURIT [Concomitant]
     Active Substance: ALLOPURINOL
     Dosage: 100 MG, TID
     Dates: end: 20191202
  12. ALFUZOSIN [Concomitant]
     Active Substance: ALFUZOSIN
     Dosage: 10 MG, QD
     Dates: end: 20191202
  13. XULTOPHY 100/3.6 [Concomitant]
     Active Substance: INSULIN DEGLUDEC\LIRAGLUTIDE
     Dosage: 38 IU

REACTIONS (7)
  - Cyanosis [Unknown]
  - Pulmonary arterial hypertension [Unknown]
  - Cardiac failure [Fatal]
  - Cardiac arrest [Fatal]
  - Fluid retention [Unknown]
  - Condition aggravated [Unknown]
  - Ascites [Unknown]

NARRATIVE: CASE EVENT DATE: 20191202
